FAERS Safety Report 9119389 (Version 1)
Quarter: 2013Q1

REPORT INFORMATION
  Report Type: Spontaneous
  Country: US (occurrence: US)
  Receive Date: 20130207
  Receipt Date: 20130207
  Transmission Date: 20140127
  Serious: Yes (Hospitalization, Other)
  Sender: FDA-Public Use
  Company Number: US-BAXTER-2013BAX002516

PATIENT
  Sex: Male

DRUGS (3)
  1. DIANEAL LOW CALCIUM [Suspect]
     Indication: PERITONEAL DIALYSIS
     Route: 033
  2. DIANEAL LOW CALCIUM [Suspect]
     Indication: PERITONEAL DIALYSIS
     Route: 033
  3. AMPHOTERICIN B [Concomitant]
     Indication: OSTEOMYELITIS
     Route: 042

REACTIONS (4)
  - Device related infection [Recovered/Resolved]
  - Sepsis [Recovered/Resolved]
  - Catheter site cellulitis [Recovered/Resolved]
  - Inguinal hernia [Not Recovered/Not Resolved]
